FAERS Safety Report 16978429 (Version 1)
Quarter: 2019Q4

REPORT INFORMATION
  Report Type: Other
  Country: US (occurrence: US)
  Receive Date: 20191031
  Receipt Date: 20191031
  Transmission Date: 20200122
  Serious: No
  Sender: FDA-Public Use
  Company Number: US-AMAG PHARMACEUTICALS, INC.-AMAG201905005

PATIENT
  Age: 25 Year
  Sex: Female

DRUGS (1)
  1. MAKENA [Suspect]
     Active Substance: HYDROXYPROGESTERONE CAPROATE
     Indication: PREMATURE DELIVERY
     Route: 058
     Dates: start: 20190903

REACTIONS (5)
  - Injection site rash [Unknown]
  - Pain in extremity [Unknown]
  - Feeling hot [Unknown]
  - Injection site erythema [Unknown]
  - Erythema [Unknown]

NARRATIVE: CASE EVENT DATE: 20190917
